FAERS Safety Report 5496411-6 (Version None)
Quarter: 2007Q4

REPORT INFORMATION
  Report Type: 
  Country: None (occurrence: None)
  Receive Date: 20071023
  Receipt Date: 20071023
  Transmission Date: 20080405
  Serious: Yes (Hospitalization)
  Sender: FDA-Public Use
  Company Number: None

PATIENT
  Age: 75 Year
  Sex: Male

DRUGS (1)
  1. REPLIVA 21/7 [Suspect]
     Indication: ANAEMIA
     Dosage: 1 TABLET DAILY ORAL
     Route: 048
     Dates: start: 20070601, end: 20070607

REACTIONS (4)
  - COELIAC DISEASE [None]
  - GASTROINTESTINAL INFLAMMATION [None]
  - JEJUNITIS [None]
  - UPPER GASTROINTESTINAL HAEMORRHAGE [None]
